FAERS Safety Report 9644847 (Version 4)
Quarter: 2013Q4

REPORT INFORMATION
  Report Type: Report from Study
  Country: IT (occurrence: IT)
  Receive Date: 20131025
  Receipt Date: 20131204
  Transmission Date: 20140711
  Serious: Yes (Hospitalization)
  Sender: FDA-Public Use
  Company Number: PHHY2013IT117278

PATIENT
  Age: 57 Year
  Sex: Female
  Weight: 60 kg

DRUGS (15)
  1. NEORAL [Suspect]
     Indication: PSORIASIS
     Dosage: 150 MG, DU
     Route: 048
     Dates: start: 20121206, end: 20130227
  2. AMLODIPINE [Concomitant]
     Indication: HYPERTENSION
     Dosage: 10 MG, PER DAY
     Route: 048
  3. PANTOPRAZOLE [Concomitant]
     Indication: CROHN^S DISEASE
     Dosage: 20 MG, PER DAY
     Route: 048
  4. BIFRIL [Concomitant]
     Indication: HYPERTENSION
     Route: 048
  5. KCL RETARD [Concomitant]
     Dosage: 1800 MG, PER DAY
     Route: 042
  6. ZOLOFT [Concomitant]
     Indication: DEPRESSION
     Dosage: 12.5 MG, PER DAY
     Route: 048
  7. ACITRETINA [Concomitant]
     Dosage: 25 MG, BID
  8. METHOTREXATE [Concomitant]
     Dosage: 3 DF, WEEKLY
  9. CEFTRIAXONE [Concomitant]
     Dosage: 1 DF, BID
  10. TAZOCIN [Concomitant]
     Dosage: 1 DF, TID
  11. FOLINA [Concomitant]
     Dosage: 1 DF, Q8H
  12. ALDACTONE [Concomitant]
     Dosage: 100 MG, DU
  13. LASIX [Concomitant]
     Dosage: 20 MG, DU
  14. NSAID^S [Concomitant]
  15. FANSULIDE [Concomitant]
     Dosage: 50 MG, UNK

REACTIONS (19)
  - Pustular psoriasis [Recovered/Resolved]
  - Impetigo [Recovered/Resolved]
  - Psoriatic arthropathy [Recovered/Resolved]
  - Psoriasis [Recovered/Resolved]
  - Fatigue [Recovered/Resolved]
  - Proteinuria [Recovered/Resolved]
  - Hypocalcaemia [Recovered/Resolved]
  - Thrombocytosis [Recovered/Resolved]
  - Blood potassium decreased [Recovered/Resolved]
  - Anaemia [Recovered/Resolved]
  - Muscular weakness [Recovered/Resolved]
  - Hypochromasia [Recovered/Resolved]
  - Blood iron decreased [Recovered/Resolved]
  - Anisocytosis [Recovered/Resolved]
  - Lymphopenia [Recovered/Resolved]
  - Staphylococcal infection [Recovered/Resolved]
  - Escherichia infection [Recovered/Resolved]
  - Leukocytosis [Recovered/Resolved]
  - Neutrophilia [Recovered/Resolved]
